FAERS Safety Report 5801808-8 (Version None)
Quarter: 2008Q3

REPORT INFORMATION
  Report Type: 
  Country: None (occurrence: None)
  Receive Date: 20080702
  Receipt Date: 20080624
  Transmission Date: 20090109
  Serious: Yes (Other)
  Sender: FDA-Public Use
  Company Number: LTI2008A00143

PATIENT
  Age: 60 Year
  Sex: Male

DRUGS (7)
  1. COMPETACT [Suspect]
     Indication: TYPE 2 DIABETES MELLITUS
     Dosage: 2 TAB. (1 TAB., 2 IN 1 D) ORAL; 1 TAB. (1 TAB., 1 IN 1 D) ORAL
     Route: 048
     Dates: start: 20071220, end: 20080401
  2. COMPETACT [Suspect]
     Indication: TYPE 2 DIABETES MELLITUS
     Dosage: 2 TAB. (1 TAB., 2 IN 1 D) ORAL; 1 TAB. (1 TAB., 1 IN 1 D) ORAL
     Route: 048
     Dates: start: 20080401, end: 20080601
  3. PREVISCAN (FLUINDIONE) [Concomitant]
  4. RAMIPRIL [Concomitant]
  5. PANTOPRAZOLE SODIUM [Concomitant]
  6. INEGY (SIMVASTATIN, EZETIMIBE) [Concomitant]
  7. GLUCOR (ACARBOSE) [Concomitant]

REACTIONS (1)
  - PULMONARY ARTERIAL HYPERTENSION [None]
